FAERS Safety Report 17933169 (Version 1)
Quarter: 2020Q2

REPORT INFORMATION
  Report Type: Spontaneous
  Country: GB (occurrence: GB)
  Receive Date: 20200624
  Receipt Date: 20200624
  Transmission Date: 20200714
  Serious: Yes (Other)
  Sender: FDA-Public Use
  Company Number: GB-AUROBINDO-AUR-APL-2020-029893

PATIENT
  Age: 61 Year
  Sex: Female

DRUGS (3)
  1. PREDNISOLONE. [Suspect]
     Active Substance: PREDNISOLONE
     Indication: PRODUCT USED FOR UNKNOWN INDICATION
     Dosage: UNKNOWN
     Route: 065
  2. BENEPALI [Suspect]
     Active Substance: ETANERCEPT
     Indication: RHEUMATOID ARTHRITIS
     Dosage: 50 MILLIGRAM, EVERY WEEK
     Route: 058
     Dates: start: 20200304
  3. NAPROXEN. [Suspect]
     Active Substance: NAPROXEN
     Indication: PRODUCT USED FOR UNKNOWN INDICATION
     Dosage: UNKNOWN
     Route: 065

REACTIONS (16)
  - Mental fatigue [Unknown]
  - Frustration tolerance decreased [Unknown]
  - Depression [Unknown]
  - Lacrimation increased [Unknown]
  - Suicidal ideation [Unknown]
  - Rheumatoid arthritis [Unknown]
  - Fatigue [Not Recovered/Not Resolved]
  - Viral infection [Unknown]
  - Drug ineffective [Unknown]
  - Cough [Unknown]
  - Poor quality sleep [Unknown]
  - Negative thoughts [Unknown]
  - Ill-defined disorder [Recovered/Resolved]
  - Sinus disorder [Unknown]
  - Mental disorder [Unknown]
  - Abdominal discomfort [Unknown]
